FAERS Safety Report 9846458 (Version 1)
Quarter: 2014Q1

REPORT INFORMATION
  Report Type: Spontaneous
  Country: US (occurrence: None)
  Receive Date: 20140122
  Receipt Date: 20140122
  Transmission Date: 20141002
  Serious: Yes (Hospitalization)
  Sender: FDA-Public Use
  Company Number: 1713747-2013-00030

PATIENT
  Sex: Male

DRUGS (3)
  1. DELFLEX [Suspect]
  2. LIBERTY CYCLER [Suspect]
  3. LIBERTY CYCLER CASSETTE [Suspect]

REACTIONS (4)
  - Pulmonary oedema [None]
  - Diaphragmatic rupture [None]
  - Haemodialysis [None]
  - Medical device complication [None]
